FAERS Safety Report 10072129 (Version 2)
Quarter: 2014Q2

REPORT INFORMATION
  Report Type: Report from Study
  Country: US (occurrence: US)
  Receive Date: 20140411
  Receipt Date: 20140411
  Transmission Date: 20141212
  Serious: Yes (Hospitalization, Other)
  Sender: FDA-Public Use
  Company Number: US-ROCHE-1319540

PATIENT
  Age: 64 Year
  Sex: Female
  Weight: 68.1 kg

DRUGS (11)
  1. HERCEPTIN [Suspect]
     Indication: BREAST CANCER
     Route: 042
     Dates: start: 20130911
  2. HERCEPTIN [Suspect]
     Route: 065
     Dates: start: 201311
  3. PERJETA [Suspect]
     Indication: BREAST CANCER
     Dosage: LOADING DOSE.
     Route: 042
     Dates: start: 201311, end: 20140325
  4. TAXOL [Concomitant]
     Indication: BREAST CANCER
     Route: 042
     Dates: start: 20130911
  5. TAXOL [Concomitant]
     Dosage: 12 CYCLES
     Route: 065
     Dates: start: 20131111, end: 20140304
  6. FRAGMIN [Concomitant]
     Indication: ANTICOAGULANT THERAPY
     Dosage: 12,500 IU 0.5 ML EVERY NIGHT
     Route: 058
     Dates: start: 201310
  7. PRAVASTATIN [Concomitant]
     Indication: BLOOD CHOLESTEROL
     Route: 048
  8. ALPRAZOLAM [Concomitant]
     Indication: ANXIETY
     Dosage: FREQUENCY: AS REQUIRED.
     Route: 048
  9. CARBOPLATIN [Concomitant]
     Indication: BREAST CANCER
     Route: 065
     Dates: start: 20130911, end: 201310
  10. DOCETAXEL [Concomitant]
     Indication: BREAST CANCER
     Route: 065
     Dates: start: 20130911, end: 20131011
  11. ANASTROZOLE [Concomitant]
     Route: 048
     Dates: start: 20140305

REACTIONS (12)
  - Pyrexia [Recovered/Resolved]
  - Thrombosis [Recovered/Resolved]
  - Nausea [Recovered/Resolved]
  - Tongue disorder [Recovered/Resolved]
  - Weight decreased [Recovered/Resolved]
  - Alopecia [Recovering/Resolving]
  - White blood cell count decreased [Recovered/Resolved]
  - Pulmonary thrombosis [Recovering/Resolving]
  - Hepatic enzyme increased [Recovered/Resolved]
  - Thoracic operation [Not Recovered/Not Resolved]
  - Epistaxis [Recovering/Resolving]
  - Laryngitis [Recovered/Resolved]
